FAERS Safety Report 13287634 (Version 1)
Quarter: 2017Q1

REPORT INFORMATION
  Report Type: Spontaneous
  Country: TW (occurrence: TW)
  Receive Date: 20170302
  Receipt Date: 20170302
  Transmission Date: 20170428
  Serious: Yes (Other)
  Sender: FDA-Public Use
  Company Number: TW-MYLANLABS-2017M1013668

PATIENT

DRUGS (3)
  1. BETAMETHASONE. [Suspect]
     Active Substance: BETAMETHASONE
     Route: 064
  2. ENOXAPARIN SODIUM. [Suspect]
     Active Substance: ENOXAPARIN SODIUM
     Route: 064
  3. MAGNESIUM [Suspect]
     Active Substance: MAGNESIUM
     Route: 064

REACTIONS (3)
  - Premature baby [Unknown]
  - Foetal hypokinesia [Unknown]
  - Foetal exposure during pregnancy [Recovered/Resolved]
